FAERS Safety Report 10475073 (Version 1)
Quarter: 2014Q3

REPORT INFORMATION
  Report Type: Spontaneous
  Country: US (occurrence: None)
  Receive Date: 20140924
  Receipt Date: 20140924
  Transmission Date: 20150326
  Serious: Yes (Death)
  Sender: FDA-Public Use
  Company Number: None

PATIENT
  Age: 71 Year
  Sex: Male

DRUGS (9)
  1. SENNOSIDES [Concomitant]
     Active Substance: SENNOSIDES
  2. METOPROLOL TARTRATE. [Concomitant]
     Active Substance: METOPROLOL TARTRATE
  3. REVLIMID [Suspect]
     Active Substance: LENALIDOMIDE
     Indication: CHLOROMA
     Dosage: 10MG?DAILY X21D/28D?ORALLY
     Route: 048
     Dates: start: 20140716, end: 20140801
  4. TERAZOSIN [Concomitant]
     Active Substance: TERAZOSIN\TERAZOSIN HYDROCHLORIDE
  5. OMEPRAZOLE. [Concomitant]
     Active Substance: OMEPRAZOLE
  6. ASPIRIN. [Concomitant]
     Active Substance: ASPIRIN
  7. DIPHENHYDRAMINE [Concomitant]
     Active Substance: DIPHENHYDRAMINE
  8. FUROSEMIDE. [Concomitant]
     Active Substance: FUROSEMIDE
  9. LACTULOSE. [Concomitant]
     Active Substance: LACTULOSE

REACTIONS (12)
  - Chloroma [None]
  - Electrolyte imbalance [None]
  - Hypotension [None]
  - Tachycardia [None]
  - Dehydration [None]
  - Acute myeloid leukaemia [None]
  - Pleural effusion [None]
  - Pericardial effusion [None]
  - Hypoxia [None]
  - Condition aggravated [None]
  - Pneumonia [None]
  - Malignant neoplasm progression [None]

NARRATIVE: CASE EVENT DATE: 20140801
